FAERS Safety Report 25552380 (Version 2)
Quarter: 2025Q3

REPORT INFORMATION
  Report Type: Spontaneous
  Country: KZ (occurrence: KZ)
  Receive Date: 20250715
  Receipt Date: 20250729
  Transmission Date: 20251020
  Serious: Yes (Other)
  Sender: NOVO NORDISK
  Company Number: KZ-NOVOPROD-1475585

PATIENT
  Sex: Female

DRUGS (1)
  1. OZEMPIC [Suspect]
     Active Substance: SEMAGLUTIDE
     Indication: Weight control
     Dates: start: 2025

REACTIONS (3)
  - Retinal detachment [Unknown]
  - Vitreous floaters [Unknown]
  - Off label use [Unknown]

NARRATIVE: CASE EVENT DATE: 20250101
